FAERS Safety Report 10478205 (Version 1)
Quarter: 2014Q3

REPORT INFORMATION
  Report Type: Spontaneous
  Country: US (occurrence: US)
  Receive Date: 20140926
  Receipt Date: 20140926
  Transmission Date: 20150326
  Serious: No
  Sender: FDA-Public Use
  Company Number: US-MYLANLABS-2014S1009286

PATIENT
  Age: 65 Year
  Sex: Female

DRUGS (1)
  1. NITROGLYCERIN TRANSDERMAL SYSTEM [Suspect]
     Active Substance: NITROGLYCERIN
     Dosage: .6 MG,QH
     Route: 062
     Dates: start: 20140301

REACTIONS (2)
  - Application site burn [Not Recovered/Not Resolved]
  - Application site ulcer [Not Recovered/Not Resolved]

NARRATIVE: CASE EVENT DATE: 201403
